FAERS Safety Report 5619088-5 (Version None)
Quarter: 2008Q1

REPORT INFORMATION
  Report Type: 
  Country: None (occurrence: None)
  Receive Date: 20080207
  Receipt Date: 20080130
  Transmission Date: 20080703
  Serious: Yes (Hospitalization, Other)
  Sender: FDA-Public Use
  Company Number: US-PFIZER INC-2008010225

PATIENT

DRUGS (1)
  1. LYRICA [Suspect]

REACTIONS (1)
  - ENCEPHALITIS [None]
